FAERS Safety Report 5913551-5 (Version None)
Quarter: 2008Q4

REPORT INFORMATION
  Report Type: 
  Country: None (occurrence: None)
  Receive Date: 20081006
  Receipt Date: 20080923
  Transmission Date: 20090506
  Serious: Yes (Hospitalization)
  Sender: FDA-Public Use
  Company Number: 2008-03535

PATIENT
  Age: 72 Year
  Sex: Male
  Weight: 83.9 kg

DRUGS (1)
  1. VELCADE [Suspect]
     Indication: MULTIPLE MYELOMA
     Dosage: INTRAVENOUS
     Route: 042
     Dates: start: 20080714

REACTIONS (3)
  - ARRHYTHMIA [None]
  - EJECTION FRACTION DECREASED [None]
  - TACHYCARDIA [None]
